FAERS Safety Report 25603769 (Version 1)
Quarter: 2025Q3

REPORT INFORMATION
  Report Type: Spontaneous
  Country: CA (occurrence: CA)
  Receive Date: 20250725
  Receipt Date: 20250725
  Transmission Date: 20251020
  Serious: Yes (Other)
  Sender: CHURCH & DWIGHT
  Company Number: CA-CHURCH AND DWIGHT CO., INC-2025-CDW-01266

PATIENT
  Age: 30 Year
  Sex: Female

DRUGS (1)
  1. ZICAM COLD REMEDY NASAL SWABS (HOMEOPATHICS) [Suspect]
     Active Substance: HOMEOPATHICS\ZINC ACETATE\ZINC GLUCONATE
     Indication: Nasopharyngitis
     Dosage: ONCE A WEEK OVER THE COURSE OF SEVERAL MONTHS, QW
     Route: 045
     Dates: start: 20250228, end: 20250612

REACTIONS (6)
  - Hyposmia [Not Recovered/Not Resolved]
  - Nasal discomfort [Recovered/Resolved]
  - Paranasal sinus discomfort [Not Recovered/Not Resolved]
  - Facial discomfort [Not Recovered/Not Resolved]
  - Headache [Not Recovered/Not Resolved]
  - Rhinorrhoea [Recovered/Resolved]

NARRATIVE: CASE EVENT DATE: 20250314
